FAERS Safety Report 16895296 (Version 1)
Quarter: 2019Q4

REPORT INFORMATION
  Report Type: Spontaneous
  Country: BR (occurrence: BR)
  Receive Date: 20191008
  Receipt Date: 20191008
  Transmission Date: 20200122
  Serious: Yes (Hospitalization)
  Sender: FDA-Public Use
  Company Number: BR-B.I. PHARMACEUTICALS,INC./RIDGEFIELD-2019-BI-105562

PATIENT

DRUGS (1)
  1. ATROVENT [Suspect]
     Active Substance: IPRATROPIUM BROMIDE
     Indication: ASTHMA
     Route: 065

REACTIONS (10)
  - Catarrh [Recovered/Resolved]
  - Skin atrophy [Unknown]
  - Hyperglycaemia [Unknown]
  - Cough [Unknown]
  - Drug ineffective [Unknown]
  - Blood pressure increased [Unknown]
  - Oesophageal candidiasis [Unknown]
  - Swelling [Unknown]
  - Gastric disorder [Unknown]
  - Asthma [Unknown]
